FAERS Safety Report 10924992 (Version 1)
Quarter: 2015Q1

REPORT INFORMATION
  Report Type: Spontaneous
  Country: US (occurrence: None)
  Receive Date: 20150203
  Receipt Date: 20150203
  Transmission Date: 20150721
  Serious: Yes (Other)
  Sender: FDA-Public Use
  Company Number: TPA2011A04776

PATIENT
  Sex: Female
  Weight: 103.87 kg

DRUGS (1)
  1. DEXILANT [Suspect]
     Active Substance: DEXLANSOPRAZOLE
     Indication: GASTRITIS
     Route: 048
     Dates: start: 20100809

REACTIONS (6)
  - Weight increased [None]
  - Productive cough [None]
  - Dyspepsia [None]
  - Vomiting [None]
  - Dyspnoea [None]
  - Nausea [None]
